FAERS Safety Report 5373393-9 (Version None)
Quarter: 2007Q2

REPORT INFORMATION
  Report Type: 
  Country: None (occurrence: None)
  Receive Date: 20070626
  Receipt Date: 20070626
  Transmission Date: 20071010
  Serious: No
  Sender: FDA-Public Use
  Company Number: None

PATIENT
  Age: 41 Year
  Sex: Male
  Weight: 98.8842 kg

DRUGS (2)
  1. PROPYLTHIOURACIL [Suspect]
     Indication: HYPOTHYROIDISM
     Dates: start: 20060101
  2. SYNTHROID [Suspect]
     Indication: HYPERTHYROIDISM
     Dosage: 100MCG VIAL

REACTIONS (1)
  - HYPOTHYROIDISM [None]
